FAERS Safety Report 12233876 (Version 3)
Quarter: 2016Q2

REPORT INFORMATION
  Report Type: Spontaneous
  Country: BR (occurrence: BR)
  Receive Date: 20160404
  Receipt Date: 20160422
  Transmission Date: 20160815
  Serious: Yes (Other)
  Sender: FDA-Public Use
  Company Number: BR-SA-2016SA064007

PATIENT
  Sex: Female

DRUGS (3)
  1. PANTOPRAZOLE [Concomitant]
     Active Substance: PANTOPRAZOLE SODIUM
  2. ARAVA [Suspect]
     Active Substance: LEFLUNOMIDE
     Dosage: STRENGTH: 20 MG?START DATE: 8 YEARS
     Route: 048
  3. PREDSIM [Concomitant]
     Active Substance: PREDNISOLONE
     Indication: ANALGESIC THERAPY

REACTIONS (11)
  - Subcutaneous abscess [Unknown]
  - Pain [Recovered/Resolved]
  - Lung disorder [Unknown]
  - Abscess [Unknown]
  - Purulence [Recovered/Resolved]
  - Lung abscess [Recovering/Resolving]
  - Chest X-ray abnormal [Unknown]
  - Skin exfoliation [Unknown]
  - Dyspnoea [Unknown]
  - Breast abscess [Unknown]
  - Skin injury [Unknown]
